FAERS Safety Report 24137753 (Version 2)
Quarter: 2024Q3

REPORT INFORMATION
  Report Type: Spontaneous
  Country: US (occurrence: US)
  Receive Date: 20240725
  Receipt Date: 20240814
  Transmission Date: 20241016
  Serious: Yes (Other)
  Sender: FRESENIUS KABI
  Company Number: US-FreseniusKabi-FK202411308

PATIENT

DRUGS (1)
  1. PROTAMINE SULFATE [Suspect]
     Active Substance: PROTAMINE SULFATE
     Indication: Procoagulant therapy
     Dosage: FORM OF ADMINISTRATION: INJECTION

REACTIONS (4)
  - Type I hypersensitivity [Recovered/Resolved]
  - Haemorrhage [Unknown]
  - Therapeutic product effect increased [Unknown]
  - Paradoxical drug reaction [Unknown]
